FAERS Safety Report 22241258 (Version 1)
Quarter: 2023Q2

REPORT INFORMATION
  Report Type: Spontaneous
  Country: US (occurrence: US)
  Receive Date: 20230421
  Receipt Date: 20230421
  Transmission Date: 20230722
  Serious: Yes (Other)
  Sender: FDA-Public Use
  Company Number: US-002147023-NVSC2023US085249

PATIENT

DRUGS (3)
  1. TRAMETINIB [Suspect]
     Active Substance: TRAMETINIB
     Indication: Metastatic neoplasm
     Dosage: 2 MG, QD (CYCLES ADMINISTERED EVERY 28 DAYS)
     Route: 048
  2. DABRAFENIB [Suspect]
     Active Substance: DABRAFENIB
     Indication: Metastatic neoplasm
     Dosage: 150 MG, BID (CYCLES ADMINISTERED EVERY 28 DAYS)
     Route: 048
  3. ONALESPIB [Suspect]
     Active Substance: ONALESPIB
     Indication: Metastatic neoplasm
     Dosage: 180 MG/M2, ON DAY 1,8 AND 15 (CYCLES ADMINISTERED EVERY 28 DAYS)
     Route: 042

REACTIONS (3)
  - Metastatic neoplasm [Unknown]
  - Malignant neoplasm progression [Unknown]
  - Product use issue [Unknown]
